FAERS Safety Report 9565408 (Version 1)
Quarter: 2013Q3

REPORT INFORMATION
  Report Type: Spontaneous
  Country: CH (occurrence: CH)
  Receive Date: 20130930
  Receipt Date: 20130930
  Transmission Date: 20140515
  Serious: Yes (Hospitalization, Other)
  Sender: FDA-Public Use
  Company Number: CH-PFIZER INC-2013275174

PATIENT
  Age: 64 Year
  Sex: Female

DRUGS (2)
  1. SERTRALINE HCL [Suspect]
     Dosage: 25 MG, 1X/DAY BEFORE BEDTIME
     Route: 048
  2. XARELTO [Interacting]
     Indication: EMBOLISM VENOUS
     Dosage: 20 MG, 1X/DAY
     Route: 048
     Dates: start: 201303, end: 20130902

REACTIONS (6)
  - Gastrointestinal haemorrhage [Recovering/Resolving]
  - Haemorrhagic anaemia [Recovering/Resolving]
  - Asthenia [Recovering/Resolving]
  - Fatigue [Recovering/Resolving]
  - Activities of daily living impaired [Recovering/Resolving]
  - Drug interaction [Unknown]
